FAERS Safety Report 4700236-6 (Version None)
Quarter: 2005Q2

REPORT INFORMATION
  Report Type: 
  Country: None (occurrence: None)
  Receive Date: 20050627
  Receipt Date: 20050616
  Transmission Date: 20051028
  Serious: Yes (Death, Hospitalization)
  Sender: FDA-Public Use
  Company Number: US-JNJFOC-20050605079

PATIENT
  Sex: Male

DRUGS (6)
  1. EXTRA STRENGTH TYLENOL [Suspect]
     Indication: PAIN
     Route: 049
  2. EXTRA STRENGTH TYLENOL [Suspect]
     Indication: INSOMNIA
     Route: 049
  3. EXTRA STRENGTH TYLENOL [Suspect]
     Indication: ANXIETY
     Route: 049
  4. COUMADIN [Concomitant]
  5. ATENOLOL [Concomitant]
  6. POTASSIUM CHLORIDE [Concomitant]

REACTIONS (5)
  - ATRIAL FIBRILLATION [None]
  - CARDIAC FAILURE CONGESTIVE [None]
  - CORONARY ARTERY DISEASE [None]
  - DELIRIUM TREMENS [None]
  - GASTRIC ULCER [None]
